FAERS Safety Report 15504545 (Version 1)
Quarter: 2018Q4

REPORT INFORMATION
  Report Type: Spontaneous
  Country: US (occurrence: US)
  Receive Date: 20181016
  Receipt Date: 20181016
  Transmission Date: 20190205
  Serious: No
  Sender: FDA-Public Use
  Company Number: US-AMGEN-USASP2018143063

PATIENT

DRUGS (6)
  1. PROCRIT [Suspect]
     Active Substance: ERYTHROPOIETIN
     Indication: HAEMORRHAGIC ANAEMIA
     Dosage: UNK
     Route: 065
  2. HEMOPURE [Concomitant]
     Active Substance: HEMOGLOBIN GLUTAMER-250 (BOVINE)
     Indication: HAEMORRHAGIC ANAEMIA
  3. PROCRIT [Suspect]
     Active Substance: ERYTHROPOIETIN
     Indication: ANAEMIA POSTOPERATIVE
  4. IRON [Concomitant]
     Active Substance: IRON
     Indication: HAEMORRHAGIC ANAEMIA
     Dosage: UNK
  5. IRON [Concomitant]
     Active Substance: IRON
     Indication: ANAEMIA POSTOPERATIVE
  6. HEMOPURE [Concomitant]
     Active Substance: HEMOGLOBIN GLUTAMER-250 (BOVINE)
     Indication: ANAEMIA POSTOPERATIVE
     Dosage: UNK

REACTIONS (1)
  - Off label use [Unknown]
